FAERS Safety Report 7231240-4 (Version None)
Quarter: 2011Q1

REPORT INFORMATION
  Report Type: 
  Country: None (occurrence: None)
  Receive Date: 20110118
  Receipt Date: 20110112
  Transmission Date: 20110831
  Serious: Yes (Hospitalization)
  Sender: FDA-Public Use
  Company Number: B0693970A

PATIENT
  Sex: Male
  Weight: 78 kg

DRUGS (3)
  1. THALIDOMIDE [Suspect]
     Indication: MULTIPLE MYELOMA
     Route: 048
  2. PREDNISONE [Suspect]
     Indication: MULTIPLE MYELOMA
     Dates: start: 20100812
  3. MELPHALAN HYDROCHLORIDE [Suspect]
     Indication: MULTIPLE MYELOMA
     Dates: start: 20100812

REACTIONS (4)
  - NEUTROPENIC SEPSIS [None]
  - HAEMOGLOBIN DECREASED [None]
  - FATIGUE [None]
  - DYSPNOEA [None]
